FAERS Safety Report 8046263-5 (Version None)
Quarter: 2012Q1

REPORT INFORMATION
  Report Type: 
  Country: None (occurrence: None)
  Receive Date: 20120113
  Receipt Date: 20120105
  Transmission Date: 20120608
  Serious: Yes (Hospitalization)
  Sender: FDA-Public Use
  Company Number: FR-ROCHE-1028113

PATIENT
  Sex: Female

DRUGS (3)
  1. MYCOPHENOLATE MOFETIL (CELLCEPT) [Suspect]
     Indication: AUTOIMMUNE HEPATITIS
     Dates: start: 20110901
  2. PREDNISONE [Concomitant]
     Indication: RENAL FAILURE
     Dates: start: 20110901
  3. ATORVASTATIN [Suspect]
     Indication: AUTOIMMUNE HEPATITIS
     Dates: start: 20110101

REACTIONS (2)
  - BALANCE DISORDER [None]
  - CEREBELLAR SYNDROME [None]
